FAERS Safety Report 25310952 (Version 3)
Quarter: 2025Q3

REPORT INFORMATION
  Report Type: Spontaneous
  Country: JP (occurrence: JP)
  Receive Date: 20250514
  Receipt Date: 20250903
  Transmission Date: 20251020
  Serious: Yes (Other)
  Sender: TAKEDA
  Company Number: JP-TAKEDA-2025TUS044695

PATIENT
  Age: 31 Year
  Sex: Male
  Weight: 62.3 kg

DRUGS (1)
  1. LIALDA [Suspect]
     Active Substance: MESALAMINE
     Indication: Colitis ulcerative
     Dosage: 4800 MILLIGRAM, QD
     Dates: start: 20250423, end: 20250507

REACTIONS (4)
  - Gastrointestinal oedema [Unknown]
  - Drug intolerance [Recovered/Resolved]
  - Abdominal pain [Unknown]
  - Gastrointestinal mucosal disorder [Unknown]

NARRATIVE: CASE EVENT DATE: 20250507
